FAERS Safety Report 5097198-1 (Version None)
Quarter: 2006Q3

REPORT INFORMATION
  Report Type: 
  Country: None (occurrence: None)
  Receive Date: 20060906
  Receipt Date: 20051221
  Transmission Date: 20061208
  Serious: Yes (Hospitalization)
  Sender: FDA-Public Use
  Company Number: US-ROCHE-445368

PATIENT
  Age: 19 Year
  Sex: Male
  Weight: 90.7 kg

DRUGS (6)
  1. ACCUTANE [Suspect]
     Route: 048
     Dates: start: 19860414, end: 19870115
  2. ACCUTANE [Suspect]
     Dosage: DOSAGE REGIMEN REPORTED AS: VARIED
     Route: 048
     Dates: start: 19940117, end: 19940601
  3. PREDNISONE TAB [Concomitant]
     Dates: start: 19930831
  4. PREDNISONE TAB [Concomitant]
     Route: 048
     Dates: start: 19940307, end: 19940311
  5. QUESTRAN [Concomitant]
     Dates: start: 19940222, end: 19940415
  6. DIPENTUM [Concomitant]
     Dates: start: 19930831

REACTIONS (42)
  - ACNE [None]
  - BILE DUCT OBSTRUCTION [None]
  - BITE [None]
  - BLADDER OBSTRUCTION [None]
  - BLOOD CHOLESTEROL INCREASED [None]
  - BLOOD TESTOSTERONE DECREASED [None]
  - BREAST MASS [None]
  - BRONCHITIS [None]
  - CHOLANGITIS SCLEROSING [None]
  - COLITIS [None]
  - COLITIS ULCERATIVE [None]
  - CONJUNCTIVITIS ALLERGIC [None]
  - CROHN'S DISEASE [None]
  - CYSTITIS HAEMORRHAGIC [None]
  - DEPRESSION [None]
  - DRUG HYPERSENSITIVITY [None]
  - DRY SKIN [None]
  - DUODENAL STENOSIS [None]
  - FIBROUS HISTIOCYTOMA [None]
  - GASTROENTERITIS [None]
  - HAEMANGIOMA [None]
  - HYPERLIPIDAEMIA [None]
  - INFLAMMATORY BOWEL DISEASE [None]
  - INGUINAL HERNIA [None]
  - INSOMNIA [None]
  - INTERVERTEBRAL DISC DEGENERATION [None]
  - INTRANEURAL CYST [None]
  - IRRITABLE BOWEL SYNDROME [None]
  - LEUKOPENIA [None]
  - NASOPHARYNGITIS [None]
  - ONYCHOLYSIS [None]
  - OSTEOARTHRITIS [None]
  - OSTEOPOROSIS [None]
  - PANCREATIC INSUFFICIENCY [None]
  - PAPILLOMA [None]
  - PHARYNGITIS [None]
  - RENAL DISORDER [None]
  - RHINITIS [None]
  - SINUSITIS [None]
  - SPINAL COMPRESSION FRACTURE [None]
  - SYRINGOMYELIA [None]
  - THROMBOCYTOPENIA [None]
